FAERS Safety Report 21615673 (Version 2)
Quarter: 2023Q1

REPORT INFORMATION
  Report Type: Other
  Country: CA (occurrence: CA)
  Receive Date: 20221118
  Receipt Date: 20230324
  Transmission Date: 20230418
  Serious: Yes (Other)
  Sender: FDA-Public Use
  Company Number: CA-APOTEX-2022AP015575

PATIENT
  Age: 58 Year
  Sex: Female

DRUGS (4)
  1. IMIQUIMOD [Suspect]
     Active Substance: IMIQUIMOD
     Indication: Skin papilloma
     Dosage: UNK
     Route: 065
  2. OCALIVA [Suspect]
     Active Substance: OBETICHOLIC ACID
     Indication: Primary biliary cholangitis
     Dosage: 5 MILLIGRAM, QD
     Route: 048
  3. OCALIVA [Suspect]
     Active Substance: OBETICHOLIC ACID
     Dosage: 5 MILLIGRAM, T.I.W
     Route: 048
  4. URSODIOL [Concomitant]
     Active Substance: URSODIOL
     Indication: Product used for unknown indication
     Dosage: 750 MILLIGRAM, QD
     Route: 065

REACTIONS (6)
  - Blood alkaline phosphatase increased [Recovered/Resolved]
  - Gait inability [Recovered/Resolved]
  - Inflammation [Recovered/Resolved]
  - Loss of consciousness [Recovered/Resolved]
  - Skin papilloma [Recovered/Resolved]
  - Dizziness [Recovered/Resolved]
